FAERS Safety Report 4426878-3 (Version None)
Quarter: 2004Q3

REPORT INFORMATION
  Report Type: 
  Country: None (occurrence: None)
  Receive Date: 20040811
  Receipt Date: 20040803
  Transmission Date: 20050211
  Serious: Yes (Life-Threatening, Hospitalization, Disabling)
  Sender: FDA-Public Use
  Company Number: 2004225487GB

PATIENT
  Age: 71 Year
  Sex: Female

DRUGS (11)
  1. DEPO-MEDRONE (METHYLPREDNISOLONE) SUSPENSION, STERILE [Suspect]
     Indication: RHEUMATOID ARTHRITIS
     Dosage: INTRAMUSCULAR
     Route: 030
  2. FRUSEMIDE [Concomitant]
  3. VERAPAMIL [Concomitant]
  4. METHOTREXATE [Concomitant]
  5. FOLIC ACID [Concomitant]
  6. LANSOPRAZOLE [Concomitant]
  7. METOCLOPRAMIDE [Concomitant]
  8. FLUOXETINE [Concomitant]
  9. HYDROXYCHLOROQUINE SULFATE [Concomitant]
  10. PREDNISOLONE [Concomitant]
  11. THYROXIN (LEVOTHYROXINE  SODIUM) [Concomitant]

REACTIONS (3)
  - ANAPHYLACTIC REACTION [None]
  - CARDIAC FAILURE [None]
  - PULMONARY OEDEMA [None]
